FAERS Safety Report 12970944 (Version 4)
Quarter: 2018Q3

REPORT INFORMATION
  Report Type: Spontaneous
  Country: US (occurrence: US)
  Receive Date: 20161123
  Receipt Date: 20180717
  Transmission Date: 20181010
  Serious: Yes (Other)
  Sender: FDA-Public Use
  Company Number: US-JAZZ-2016-US-018929

PATIENT
  Sex: Female

DRUGS (43)
  1. NORTRIPTYLINE HCL [Concomitant]
     Active Substance: NORTRIPTYLINE HYDROCHLORIDE
  2. CALCIUM CITRATE [Concomitant]
     Active Substance: CALCIUM CITRATE
  3. CYMBALTA [Concomitant]
     Active Substance: DULOXETINE HYDROCHLORIDE
  4. ETODOLAC. [Concomitant]
     Active Substance: ETODOLAC
  5. HYDROXYCHLOROQUINE PHOSPHATE [Concomitant]
     Active Substance: HYDROXYCHLOROQUINE DIPHOSPHATE
  6. TOCOPHEROL [Concomitant]
     Active Substance: TOCOPHEROL
  7. ZETONNA [Concomitant]
     Active Substance: CICLESONIDE
  8. FOLIC ACID. [Concomitant]
     Active Substance: FOLIC ACID
  9. OXYMORPHONE HCL [Concomitant]
     Active Substance: OXYMORPHONE HYDROCHLORIDE
  10. COLESTIPOL HCL [Concomitant]
     Active Substance: COLESTIPOL HYDROCHLORIDE
  11. ZIPRASIDONE HYDROCHLORIDE. [Concomitant]
     Active Substance: ZIPRASIDONE HYDROCHLORIDE
  12. XANAX [Concomitant]
     Active Substance: ALPRAZOLAM
  13. NORCO [Concomitant]
     Active Substance: ACETAMINOPHEN\HYDROCODONE BITARTRATE
  14. RITALIN [Concomitant]
     Active Substance: METHYLPHENIDATE HYDROCHLORIDE
  15. XYREM [Suspect]
     Active Substance: SODIUM OXYBATE
     Dosage: DOSE ADJUSTMENTS
     Route: 048
     Dates: start: 200902, end: 201012
  16. BENTYL [Concomitant]
     Active Substance: DICYCLOMINE HYDROCHLORIDE
  17. DEPAKOTE [Concomitant]
     Active Substance: DIVALPROEX SODIUM
  18. KLONOPIN [Concomitant]
     Active Substance: CLONAZEPAM
  19. FISH OIL W/TOCOPHEROL [Concomitant]
  20. PAMELOR [Concomitant]
     Active Substance: NORTRIPTYLINE HYDROCHLORIDE
  21. WELLBUTRIN [Concomitant]
     Active Substance: BUPROPION HYDROCHLORIDE
  22. XYREM [Suspect]
     Active Substance: SODIUM OXYBATE
     Dosage: 5 G, BID
     Route: 048
     Dates: start: 201012
  23. MYCOPHENOLATE MOFETIL. [Concomitant]
     Active Substance: MYCOPHENOLATE MOFETIL
  24. AMLODIPINE BESYLATE. [Concomitant]
     Active Substance: AMLODIPINE BESYLATE
  25. CELEBREX [Concomitant]
     Active Substance: CELECOXIB
  26. DOCUSATE [Concomitant]
     Active Substance: DOCUSATE
  27. FLINTSTONES MULTIVITAMINS WITH IRON [Concomitant]
  28. AZATHIOPRINE. [Concomitant]
     Active Substance: AZATHIOPRINE
  29. LOESTRIN NOS [Concomitant]
     Active Substance: ETHINYL ESTRADIOL\NORETHINDRONE ACETATE
  30. METHOTREXATE. [Concomitant]
     Active Substance: METHOTREXATE
  31. OPANA [Concomitant]
     Active Substance: OXYMORPHONE HYDROCHLORIDE
  32. DAYTRANA [Concomitant]
     Active Substance: METHYLPHENIDATE
  33. MOMETASONE FUROATE. [Concomitant]
     Active Substance: MOMETASONE FUROATE
  34. TRILEPTAL [Concomitant]
     Active Substance: OXCARBAZEPINE
  35. VITAMIN B [Concomitant]
     Active Substance: VITAMIN B
  36. VITAMIN D3 [Concomitant]
     Active Substance: CHOLECALCIFEROL
  37. XYREM [Suspect]
     Active Substance: SODIUM OXYBATE
     Indication: NARCOLEPSY
     Dosage: 2.25 G, BID
     Route: 048
     Dates: start: 200901, end: 200902
  38. INDOMETACIN [Concomitant]
     Active Substance: INDOMETHACIN
  39. LEVONORGESTREL + ETINILESTRADIOL [Concomitant]
     Active Substance: ETHINYL ESTRADIOL\LEVONORGESTREL
  40. CYANOCOBALAMIN. [Concomitant]
     Active Substance: CYANOCOBALAMIN
  41. ROXICET [Concomitant]
     Active Substance: ACETAMINOPHEN\OXYCODONE HYDROCHLORIDE
  42. VICODIN ES [Concomitant]
     Active Substance: ACETAMINOPHEN\HYDROCODONE BITARTRATE
  43. ZOLOFT [Concomitant]
     Active Substance: SERTRALINE HYDROCHLORIDE

REACTIONS (1)
  - Parkinson^s disease [Unknown]
